FAERS Safety Report 20841089 (Version 6)
Quarter: 2022Q3

REPORT INFORMATION
  Report Type: Spontaneous
  Country: US (occurrence: US)
  Receive Date: 20220517
  Receipt Date: 20220928
  Transmission Date: 20221027
  Serious: Yes (Other)
  Sender: FDA-Public Use
  Company Number: US-PFIZER INC-202200019762

PATIENT
  Age: 68 Year
  Sex: Male
  Weight: 99.79 kg

DRUGS (9)
  1. DEPO-TESTOSTERONE [Suspect]
     Active Substance: TESTOSTERONE CYPIONATE
     Indication: Testis cancer
     Dosage: UNK, (200 MG/ML)
  2. DEPO-TESTOSTERONE [Suspect]
     Active Substance: TESTOSTERONE CYPIONATE
     Indication: Orchidectomy
     Dosage: UNK, (250 MG/ML)
  3. DEPO-TESTOSTERONE [Suspect]
     Active Substance: TESTOSTERONE CYPIONATE
     Dosage: 100 MG, (DOUBLING THE 100MG DOSE)
  4. DEPO-TESTOSTERONE [Suspect]
     Active Substance: TESTOSTERONE CYPIONATE
     Dosage: UNK, (200 MG PER 1ML)
  5. DEPO-TESTOSTERONE [Suspect]
     Active Substance: TESTOSTERONE CYPIONATE
     Dosage: 250 MG (EVERY 2 WEEKS)
     Dates: start: 2022
  6. DEPO-TESTOSTERONE [Suspect]
     Active Substance: TESTOSTERONE CYPIONATE
     Dosage: 250 MG (EVERY TWO WEEKS/ HE TAKES 1ML AND LITTLE FROM ANOTHER ONE)
     Dates: start: 1987
  7. CALCIUM CARBONATE [Concomitant]
     Active Substance: CALCIUM CARBONATE
     Dosage: UNK
  8. TOZINAMERAN [Concomitant]
     Active Substance: TOZINAMERAN
     Indication: COVID-19 immunisation
     Dosage: DOSE NUMBER UNKNOWN, SINGLE
  9. INFLUENZA VIRUS VACCINE [Concomitant]
     Active Substance: INFLUENZA VIRUS VACCINE
     Indication: Immunisation
     Dosage: DOSE NUMBER UNKNOWN, SINGLE

REACTIONS (14)
  - Blindness [Unknown]
  - Drug ineffective [Unknown]
  - Circumstance or information capable of leading to medication error [Unknown]
  - Off label use [Unknown]
  - Arthritis [Unknown]
  - Disease recurrence [Unknown]
  - Weight decreased [Unknown]
  - Feeling hot [Unknown]
  - Arthralgia [Unknown]
  - Ocular discomfort [Unknown]
  - Blood testosterone abnormal [Unknown]
  - Tooth loss [Unknown]
  - Gait disturbance [Unknown]
  - Visual impairment [Unknown]

NARRATIVE: CASE EVENT DATE: 20220201
